FAERS Safety Report 6170100-7 (Version None)
Quarter: 2009Q2

REPORT INFORMATION
  Report Type: 
  Country: None (occurrence: None)
  Receive Date: 20090428
  Receipt Date: 20090421
  Transmission Date: 20091009
  Serious: Yes (Other)
  Sender: FDA-Public Use
  Company Number: B0567185A

PATIENT
  Sex: Female
  Weight: 34 kg

DRUGS (2)
  1. RELENZA [Suspect]
     Dosage: 10MG TWICE PER DAY
     Route: 055
     Dates: start: 20090216, end: 20090221
  2. MUCODYNE [Concomitant]
     Dosage: .5G PER DAY
     Route: 048
     Dates: start: 20090216

REACTIONS (6)
  - ABNORMAL BEHAVIOUR [None]
  - ASTHENIA [None]
  - CIRCULATORY COLLAPSE [None]
  - DYSPHONIA [None]
  - DYSSTASIA [None]
  - VISUAL IMPAIRMENT [None]
